FAERS Safety Report 5305489-1 (Version None)
Quarter: 2007Q2

REPORT INFORMATION
  Report Type: 
  Country: None (occurrence: None)
  Receive Date: 20070424
  Receipt Date: 20070208
  Transmission Date: 20071010
  Serious: No
  Sender: FDA-Public Use
  Company Number: US-GLAXOSMITHKLINE-A0638902A

PATIENT
  Sex: Female

DRUGS (5)
  1. SEREVENT [Suspect]
     Indication: ASTHMA
     Dosage: 2PUFF TWICE PER DAY
     Route: 055
  2. ALBUTEROL [Concomitant]
  3. ALPHA-GAN OPTICAL SOLUTION [Concomitant]
  4. ANTIHISTAMINES [Concomitant]
  5. CODEINE SUL TAB [Concomitant]

REACTIONS (1)
  - VISUAL DISTURBANCE [None]
